FAERS Safety Report 7413600-1 (Version None)
Quarter: 2011Q2

REPORT INFORMATION
  Report Type: 
  Country: None (occurrence: None)
  Receive Date: 20110413
  Receipt Date: 20110407
  Transmission Date: 20111010
  Serious: Yes (Hospitalization)
  Sender: FDA-Public Use
  Company Number: US-PFIZER INC-2009224340

PATIENT
  Sex: Male
  Weight: 119 kg

DRUGS (26)
  1. CELECOXIB [Suspect]
     Indication: ARTHRITIS
     Dosage: UNK
     Route: 048
     Dates: start: 20080827, end: 20090505
  2. IBUPROFEN [Suspect]
     Indication: ARTHRITIS
     Dosage: UNK
     Route: 048
     Dates: start: 20080827, end: 20090505
  3. IBUPROFEN [Suspect]
     Dosage: UNK
     Route: 048
     Dates: start: 20080827, end: 20090505
  4. NAPROXEN [Suspect]
     Indication: ARTHRITIS
     Dosage: UNK
     Route: 048
     Dates: start: 20080827, end: 20090505
  5. ESTER-C [Concomitant]
     Dosage: UNK
     Route: 048
     Dates: start: 19960101
  6. LOVAZA [Concomitant]
     Dosage: UNK
     Route: 048
     Dates: start: 19960101
  7. ACETYLSALICYLIC ACID [Concomitant]
     Dosage: UNK
     Route: 048
     Dates: start: 19860101
  8. BLINDED NO SUBJECT DRUG [Suspect]
     Indication: ARTHRITIS
     Dosage: UNK
     Route: 048
     Dates: start: 20080827, end: 20090505
  9. GENERAL NUTRIENTS/MINERALS/VITAMINS [Concomitant]
     Dosage: UNK
     Route: 048
     Dates: start: 20090404
  10. VESICARE [Concomitant]
     Dosage: UNK
     Route: 048
     Dates: start: 20060216
  11. ZOCOR [Concomitant]
     Dosage: UNK
     Route: 048
     Dates: start: 20040430
  12. KLONOPIN [Concomitant]
     Dosage: UNK
     Route: 048
     Dates: start: 20060727
  13. CORAL CALCIUM [Concomitant]
     Dosage: UNK
     Route: 048
     Dates: start: 19960101
  14. GLIPIZIDE [Concomitant]
     Dosage: UNK
     Route: 048
     Dates: start: 20051017
  15. ACTOS [Concomitant]
     Dosage: UNK
     Route: 048
     Dates: start: 20080324
  16. CO-Q-10 [Concomitant]
     Dosage: UNK
     Route: 048
     Dates: start: 20090404
  17. NEXIUM [Concomitant]
     Dosage: 40 MG, 1X/DAY
     Route: 048
     Dates: start: 20070208
  18. CLARINEX [Concomitant]
     Dosage: UNK
     Route: 048
     Dates: start: 20001122
  19. GLUCOPHAGE [Concomitant]
     Dosage: UNK
     Route: 048
     Dates: start: 20060805
  20. VITAMIN E [Concomitant]
     Dosage: UNK
     Route: 048
     Dates: start: 19960101
  21. NAPROXEN [Suspect]
     Dosage: UNK
     Route: 048
     Dates: start: 20080827, end: 20090505
  22. BLINDED PLACEBO [Suspect]
     Indication: ARTHRITIS
     Dosage: UNK
     Route: 048
     Dates: start: 20080827, end: 20090505
  23. FELODIPINE [Concomitant]
     Dosage: UNK
     Route: 048
     Dates: start: 19960101
  24. PROZAC [Concomitant]
     Dosage: UNK
     Route: 048
     Dates: start: 20060130
  25. FLAXSEED OIL [Concomitant]
     Dosage: UNK
     Route: 048
     Dates: start: 19960101
  26. MAGNESIUM [Concomitant]
     Dosage: UNK
     Route: 048
     Dates: start: 19960101

REACTIONS (1)
  - ATRIAL FIBRILLATION [None]
